FAERS Safety Report 12782451 (Version 3)
Quarter: 2016Q4

REPORT INFORMATION
  Report Type: Report from Study
  Country: US (occurrence: US)
  Receive Date: 20160927
  Receipt Date: 20161130
  Transmission Date: 20170207
  Serious: Yes (Other)
  Sender: FDA-Public Use
  Company Number: US-BEH-2016071814

PATIENT
  Age: 66 Year
  Sex: Female
  Weight: 50.79 kg

DRUGS (1)
  1. ZEMAIRA [Suspect]
     Active Substance: .ALPHA.1-PROTEINASE INHIBITOR HUMAN
     Indication: ALPHA-1 ANTI-TRYPSIN DEFICIENCY
     Dosage: 60 MG/DL, QW
     Route: 042
     Dates: start: 20101113

REACTIONS (7)
  - Skin atrophy [Not Recovered/Not Resolved]
  - Weight decreased [Unknown]
  - Asthenia [Unknown]
  - Rash [Not Recovered/Not Resolved]
  - Impaired healing [Unknown]
  - Increased tendency to bruise [Unknown]
  - Skin fragility [Not Recovered/Not Resolved]

NARRATIVE: CASE EVENT DATE: 20130601
